FAERS Safety Report 15516922 (Version 1)
Quarter: 2018Q4

REPORT INFORMATION
  Report Type: Spontaneous
  Country: FR (occurrence: FR)
  Receive Date: 20181017
  Receipt Date: 20181017
  Transmission Date: 20190205
  Serious: Yes (Hospitalization, Other)
  Sender: FDA-Public Use
  Company Number: FR-GLAXOSMITHKLINE-FR2018186938

PATIENT
  Age: 24 Year
  Sex: Female
  Weight: 58 kg

DRUGS (1)
  1. MALARONE [Suspect]
     Active Substance: ATOVAQUONE\PROGUANIL HYDROCHLORIDE
     Indication: MALARIA PROPHYLAXIS
     Dosage: 1 DF, QD
     Route: 048
     Dates: start: 20180729, end: 20180831

REACTIONS (10)
  - Odynophagia [Recovered/Resolved]
  - Leukopenia [Recovered/Resolved]
  - Immune reconstitution inflammatory syndrome [Recovered/Resolved]
  - Neutropenia [Recovered/Resolved]
  - Lymphopenia [Recovered/Resolved]
  - Hepatitis [Recovered/Resolved]
  - Thrombocytopenia [Recovered/Resolved]
  - Headache [Recovered/Resolved]
  - Pyrexia [Recovered/Resolved]
  - Rash [Recovered/Resolved]

NARRATIVE: CASE EVENT DATE: 20180826
